FAERS Safety Report 13557855 (Version 1)
Quarter: 2017Q2

REPORT INFORMATION
  Report Type: Spontaneous
  Country: US (occurrence: US)
  Receive Date: 20170518
  Receipt Date: 20170518
  Transmission Date: 20170830
  Serious: No
  Sender: FDA-Public Use
  Company Number: US-TEVA-769863ACC

PATIENT
  Sex: Female
  Weight: 80.81 kg

DRUGS (4)
  1. ABILIFY [Concomitant]
     Active Substance: ARIPIPRAZOLE
     Indication: MOOD SWINGS
  2. ABILIFY [Concomitant]
     Active Substance: ARIPIPRAZOLE
     Indication: PSYCHOTIC DISORDER
  3. TRILEPTAL [Concomitant]
     Active Substance: OXCARBAZEPINE
     Indication: MOOD SWINGS
  4. PARAGARD T 380A [Suspect]
     Active Substance: COPPER
     Indication: CONTRACEPTION
     Route: 065

REACTIONS (2)
  - Hypomenorrhoea [Not Recovered/Not Resolved]
  - Menorrhagia [Recovered/Resolved]
